FAERS Safety Report 5141346-1 (Version None)
Quarter: 2006Q4

REPORT INFORMATION
  Report Type: 
  Country: None (occurrence: None)
  Receive Date: 20061101
  Receipt Date: 20060925
  Transmission Date: 20070319
  Serious: Yes (Hospitalization)
  Sender: FDA-Public Use
  Company Number: DE-AMGEN-UK194702

PATIENT
  Sex: Female

DRUGS (5)
  1. ARANESP [Suspect]
     Indication: ANAEMIA OF MALIGNANT DISEASE
     Route: 058
     Dates: start: 20060831
  2. NEULASTA [Concomitant]
     Route: 058
     Dates: start: 20060903
  3. DOCETAXEL [Concomitant]
     Route: 042
     Dates: start: 20060831, end: 20060831
  4. ADRIAMYCIN PFS [Concomitant]
     Route: 042
     Dates: start: 20060831, end: 20060831
  5. CYCLOPHOSPHAMIDE [Concomitant]
     Route: 042
     Dates: start: 20060831, end: 20060831

REACTIONS (3)
  - ABASIA [None]
  - PYREXIA [None]
  - THROMBOSIS [None]
